FAERS Safety Report 6561939-4 (Version None)
Quarter: 2010Q1

REPORT INFORMATION
  Report Type: 
  Country: None (occurrence: None)
  Receive Date: 20100130
  Receipt Date: 20091119
  Transmission Date: 20100710
  Serious: No
  Sender: FDA-Public Use
  Company Number: US-ABBOTT-09P-163-0595906-00

PATIENT
  Sex: Female
  Weight: 127.12 kg

DRUGS (1)
  1. HUMIRA [Suspect]
     Indication: PSORIASIS
     Dates: start: 20090825

REACTIONS (3)
  - HYPOAESTHESIA [None]
  - PAIN IN EXTREMITY [None]
  - SKIN DISCOLOURATION [None]
